FAERS Safety Report 16067140 (Version 1)
Quarter: 2019Q1

REPORT INFORMATION
  Report Type: Report from Study
  Country: US (occurrence: US)
  Receive Date: 20190313
  Receipt Date: 20190313
  Transmission Date: 20190418
  Serious: Yes (Other)
  Sender: FDA-Public Use
  Company Number: US-JNJFOC-20180806374

PATIENT
  Sex: Male

DRUGS (14)
  1. ZANTAC [Concomitant]
     Active Substance: RANITIDINE HYDROCHLORIDE
  2. IMBRUVICA [Suspect]
     Active Substance: IBRUTINIB
     Indication: CHRONIC LYMPHOCYTIC LEUKAEMIA
     Route: 048
     Dates: start: 20180401
  3. SIMVASTATIN. [Concomitant]
     Active Substance: SIMVASTATIN
  4. BENZONATATE. [Concomitant]
     Active Substance: BENZONATATE
  5. CARVEDILOL. [Concomitant]
     Active Substance: CARVEDILOL
  6. KETOROLAC TROMETHAMINE. [Concomitant]
     Active Substance: KETOROLAC TROMETHAMINE
     Dosage: ONE DROP PER EYE FOUR TIMES PER DAY/OPHTHALMIC 0.5%
  7. VITAMIN B12 [Concomitant]
     Active Substance: CYANOCOBALAMIN
  8. PREDNISOLONE ACETATE. [Concomitant]
     Active Substance: PREDNISOLONE ACETATE
     Dosage: ONE DROP PER EYE FOUR TIMES PER DAY/OPHTHALMIC
  9. FINASTERIDE. [Concomitant]
     Active Substance: FINASTERIDE
  10. ZOCOR [Concomitant]
     Active Substance: SIMVASTATIN
  11. TETRYZOLINE HYDROCHLORIDE [Concomitant]
     Active Substance: TETRAHYDROZOLINE HYDROCHLORIDE
  12. HYDROCHLORTHIAZID [Concomitant]
     Active Substance: HYDROCHLOROTHIAZIDE
     Route: 048
  13. COZAAR [Concomitant]
     Active Substance: LOSARTAN POTASSIUM
     Route: 048
  14. POTASSIUM CHLORIDE. [Concomitant]
     Active Substance: POTASSIUM CHLORIDE

REACTIONS (8)
  - Cough [Not Recovered/Not Resolved]
  - Retinal oedema [Recovering/Resolving]
  - Hypertension [Recovered/Resolved]
  - Blood potassium decreased [Recovering/Resolving]
  - Blindness [Not Recovered/Not Resolved]
  - Product dose omission [Unknown]
  - Stress [Unknown]
  - Eye swelling [Recovering/Resolving]

NARRATIVE: CASE EVENT DATE: 2018
